FAERS Safety Report 7054263-7 (Version None)
Quarter: 2010Q4

REPORT INFORMATION
  Report Type: 
  Country: None (occurrence: None)
  Receive Date: 20101014
  Receipt Date: 20101011
  Transmission Date: 20110411
  Serious: Yes (Hospitalization, Other)
  Sender: FDA-Public Use
  Company Number: SP03153

PATIENT
  Age: 68 Year
  Sex: Female

DRUGS (3)
  1. MOVIPREP [Suspect]
     Indication: COLONOSCOPY
     Dosage: ORAL
     Route: 048
     Dates: start: 20100916, end: 20100916
  2. METOPROLOL SUCCINATE [Concomitant]
  3. PANTOPRAZOLE [Concomitant]

REACTIONS (6)
  - CONFUSIONAL STATE [None]
  - CONVULSION [None]
  - HYPONATRAEMIA [None]
  - RETROGRADE AMNESIA [None]
  - THORACIC VERTEBRAL FRACTURE [None]
  - VOMITING [None]
